FAERS Safety Report 6915861-1 (Version None)
Quarter: 2010Q3

REPORT INFORMATION
  Report Type: 
  Country: None (occurrence: None)
  Receive Date: 20100810
  Receipt Date: 20100805
  Transmission Date: 20110219
  Serious: Yes (Death, Hospitalization)
  Sender: FDA-Public Use
  Company Number: IE-BAYER-201034212GPV

PATIENT
  Age: 78 Year
  Sex: Male
  Weight: 60 kg

DRUGS (8)
  1. SORAFENIB [Suspect]
     Indication: GASTRIC CANCER RECURRENT
     Dosage: UNIT DOSE: 200 MG
     Route: 048
     Dates: start: 20100702, end: 20100726
  2. CALVEPEN [Concomitant]
     Route: 048
     Dates: start: 20090101, end: 20100729
  3. LYRICA [Concomitant]
     Route: 048
     Dates: start: 20090101, end: 20100729
  4. SERENACE [Concomitant]
     Route: 048
     Dates: start: 20100101, end: 20100729
  5. OXYCONTIN [Concomitant]
     Route: 048
     Dates: start: 20100701, end: 20100729
  6. PARALEIF [Concomitant]
     Route: 048
     Dates: start: 20100701, end: 20100729
  7. NEXIUM [Concomitant]
     Route: 048
     Dates: start: 20090101, end: 20100729
  8. VALOID [Concomitant]
     Route: 048
     Dates: start: 20100101, end: 20100729

REACTIONS (3)
  - FATIGUE [None]
  - GASTRIC CANCER RECURRENT [None]
  - PAIN [None]
